FAERS Safety Report 12963582 (Version 1)
Quarter: 2016Q4

REPORT INFORMATION
  Report Type: Spontaneous
  Country: US (occurrence: US)
  Receive Date: 20161122
  Receipt Date: 20161122
  Transmission Date: 20170207
  Serious: No
  Sender: FDA-Public Use
  Company Number: US-BAYER-2016-222854

PATIENT
  Age: 84 Year
  Sex: Male
  Weight: 65.76 kg

DRUGS (4)
  1. MULTIVITAMIN [Concomitant]
     Active Substance: VITAMINS
  2. VITAMIIN C [Concomitant]
     Active Substance: ASCORBIC ACID
  3. ALEVE [Suspect]
     Active Substance: NAPROXEN SODIUM
     Dosage: 1 IN THE MORNING 1 AT NIGHT
     Route: 048
  4. DOXAZOSIN [Concomitant]
     Active Substance: DOXAZOSIN\DOXAZOSIN MESYLATE

REACTIONS (4)
  - Therapeutic response unexpected [Unknown]
  - Ear pain [Unknown]
  - Product use issue [Unknown]
  - Headache [Unknown]
